FAERS Safety Report 21809532 (Version 2)
Quarter: 2023Q1

REPORT INFORMATION
  Report Type: Report from Study
  Country: US (occurrence: US)
  Receive Date: 20230103
  Receipt Date: 20230316
  Transmission Date: 20230418
  Serious: No
  Sender: FDA-Public Use
  Company Number: US-ABBVIE-4225324

PATIENT
  Age: 59 Year
  Sex: Female

DRUGS (1)
  1. HUMIRA [Suspect]
     Active Substance: ADALIMUMAB
     Indication: Psoriatic arthropathy
     Route: 058
     Dates: start: 202208

REACTIONS (5)
  - Inflammation [Recovered/Resolved]
  - Injection site erythema [Recovering/Resolving]
  - Injection site papule [Recovered/Resolved]
  - Skin disorder [Not Recovered/Not Resolved]
  - Injection site papule [Recovering/Resolving]

NARRATIVE: CASE EVENT DATE: 20230101
